FAERS Safety Report 5141144-9 (Version None)
Quarter: 2006Q4

REPORT INFORMATION
  Report Type: 
  Country: None (occurrence: None)
  Receive Date: 20061101
  Receipt Date: 20060807
  Transmission Date: 20070319
  Serious: Yes (Hospitalization)
  Sender: FDA-Public Use
  Company Number: PHRM2006FR02285

PATIENT
  Age: 84 Year
  Sex: Female
  Weight: 70 kg

DRUGS (4)
  1. LESCOL [Suspect]
     Dosage: 20 MG, QD
     Route: 048
     Dates: start: 20060610, end: 20060613
  2. ALLOPURINOL [Suspect]
     Indication: HYPERURICAEMIA
     Dosage: 100 MG, QD
     Route: 048
     Dates: start: 20060520, end: 20060613
  3. ZANIDIP [Suspect]
     Route: 048
     Dates: end: 20060613
  4. NEBIVOLOL HCL [Suspect]
     Route: 048
     Dates: start: 20060520, end: 20060613

REACTIONS (18)
  - ARTERITIS [None]
  - C-REACTIVE PROTEIN INCREASED [None]
  - CREATININE RENAL CLEARANCE DECREASED [None]
  - EXTREMITY NECROSIS [None]
  - EYELID OEDEMA [None]
  - FINGER AMPUTATION [None]
  - GLOMERULONEPHRITIS MEMBRANOPROLIFERATIVE [None]
  - HAEMATURIA [None]
  - NEPHROANGIOSCLEROSIS [None]
  - NEUTROPHIL COUNT INCREASED [None]
  - PERIPHERAL ISCHAEMIA [None]
  - PROTEINURIA [None]
  - PRURITUS [None]
  - PURPURA [None]
  - PYREXIA [None]
  - RASH MACULO-PAPULAR [None]
  - RENAL FAILURE [None]
  - TOXIC SKIN ERUPTION [None]
